FAERS Safety Report 18979211 (Version 1)
Quarter: 2021Q1

REPORT INFORMATION
  Report Type: Spontaneous
  Country: GB (occurrence: GB)
  Receive Date: 20210308
  Receipt Date: 20210308
  Transmission Date: 20210420
  Serious: Yes (Other)
  Sender: FDA-Public Use
  Company Number: GB-DEXPHARM-20210269

PATIENT
  Age: 24 Year
  Sex: Female
  Weight: 73 kg

DRUGS (1)
  1. VENLAFAXINE [Suspect]
     Active Substance: VENLAFAXINE HYDROCHLORIDE
     Indication: ILL-DEFINED DISORDER
     Dosage: 37.5MG
     Dates: start: 20210224, end: 20210225

REACTIONS (10)
  - Stupor [Unknown]
  - Tic [Unknown]
  - Dyskinesia [Unknown]
  - Gait disturbance [Unknown]
  - Hyperventilation [Unknown]
  - Coordination abnormal [Recovered/Resolved]
  - Tremor [Unknown]
  - Dysphemia [Unknown]
  - Restlessness [Unknown]
  - Vomiting [Unknown]

NARRATIVE: CASE EVENT DATE: 20210224
